FAERS Safety Report 10419563 (Version 1)
Quarter: 2014Q3

REPORT INFORMATION
  Report Type: Spontaneous
  Country: PT (occurrence: None)
  Receive Date: 20140827
  Receipt Date: 20140827
  Transmission Date: 20150326
  Serious: Yes (Hospitalization)
  Sender: FDA-Public Use
  Company Number: NSR_01608_2014

PATIENT
  Age: 41 Year
  Sex: Male

DRUGS (1)
  1. BACLOFEN. [Suspect]
     Active Substance: BACLOFEN
     Indication: MUSCLE SPASTICITY
     Route: 037

REACTIONS (23)
  - Withdrawal syndrome [None]
  - Cognitive disorder [None]
  - Neutrophilia [None]
  - Septic shock [None]
  - Renal failure acute [None]
  - Multi-organ failure [None]
  - Haemodynamic instability [None]
  - Sedation [None]
  - Respiratory failure [None]
  - Pneumonia [None]
  - Anuria [None]
  - Device malfunction [None]
  - Generalised tonic-clonic seizure [None]
  - Cardiovascular disorder [None]
  - Hypotension [None]
  - Lung infiltration [None]
  - Tachycardia [None]
  - Hyperthermia [None]
  - Metabolic acidosis [None]
  - Hepatic enzyme increased [None]
  - Cardiac arrest [None]
  - Neuromuscular blocking therapy [None]
  - Rhabdomyolysis [None]
